FAERS Safety Report 4388840-9 (Version None)
Quarter: 2004Q3

REPORT INFORMATION
  Report Type: 
  Country: None (occurrence: None)
  Receive Date: 20040702
  Receipt Date: 20040525
  Transmission Date: 20050211
  Serious: Yes (Hospitalization)
  Sender: FDA-Public Use
  Company Number: PHEH2004US05801

PATIENT
  Age: 79 Year
  Sex: Female

DRUGS (12)
  1. STARLIX [Suspect]
     Indication: DIABETES MELLITUS NON-INSULIN-DEPENDENT
     Dosage: 60 MG, TID
     Route: 048
     Dates: start: 20040115, end: 20040522
  2. AVANDIA [Suspect]
     Indication: DIABETES MELLITUS
     Dosage: 500 MG, BID
     Route: 048
  3. METFORMIN [Suspect]
     Dosage: 50 MG, BID
     Route: 048
     Dates: start: 20030101
  4. BENICAR [Concomitant]
     Dosage: 20 MG, QD
  5. LEVOXYL [Concomitant]
     Dosage: 112 UG, QD
  6. LIPITOR [Concomitant]
     Dosage: 10 MG, QD
  7. TAMOXIFEN [Concomitant]
     Dosage: 10 MG, QD
  8. AMITRIPTYLINE HCL [Concomitant]
     Dosage: 25 MG, QD
  9. LEXAPRO [Concomitant]
     Dosage: 10 MG, QD
  10. ALPRAZOLAM [Concomitant]
     Dosage: UNK, PRN
  11. DIGOXIN [Concomitant]
  12. TUMS [Concomitant]

REACTIONS (21)
  - AORTIC VALVE SCLEROSIS [None]
  - BLOOD GLUCOSE DECREASED [None]
  - BLOOD GLUCOSE INCREASED [None]
  - CARDIAC MURMUR FUNCTIONAL [None]
  - CAROTID ARTERY DISEASE [None]
  - DIASTOLIC DYSFUNCTION [None]
  - DIZZINESS [None]
  - DYSPEPSIA [None]
  - DYSPNOEA [None]
  - ELECTROCARDIOGRAM QRS COMPLEX ABNORMAL [None]
  - ELECTROCARDIOGRAM QT PROLONGED [None]
  - ELECTROCARDIOGRAM T WAVE ABNORMAL [None]
  - LOSS OF CONSCIOUSNESS [None]
  - PALPITATIONS [None]
  - SINUS ARRHYTHMIA [None]
  - SINUS TACHYCARDIA [None]
  - SUPRAVENTRICULAR EXTRASYSTOLES [None]
  - SYNCOPE [None]
  - URINARY TRACT INFECTION [None]
  - VENTRICULAR EXTRASYSTOLES [None]
  - VENTRICULAR HYPERTROPHY [None]
